FAERS Safety Report 8911448 (Version 1)
Quarter: 2012Q4

REPORT INFORMATION
  Report Type: 
  Country: US (occurrence: US)
  Receive Date: 20121115
  Receipt Date: 20121115
  Transmission Date: 20130627
  Serious: No
  Sender: FDA-Public Use
  Company Number: US-PFIZER INC-2012283120

PATIENT
  Age: 35 Year
  Sex: Male
  Weight: 122.45 kg

DRUGS (4)
  1. ZOLOFT [Suspect]
     Indication: PARANOID STATE
     Dosage: 100 mg, 1x/day
     Route: 048
  2. BENZTROPINE [Concomitant]
     Dosage: 0.5 mg, UNK
  3. INVEGA [Concomitant]
     Dosage: 3 mg, UNK
  4. RISPERIDONE [Concomitant]
     Dosage: 3 mg, UNK

REACTIONS (2)
  - Off label use [Unknown]
  - Drug screen false positive [Recovered/Resolved]
